FAERS Safety Report 7577921-4 (Version None)
Quarter: 2011Q2

REPORT INFORMATION
  Report Type: 
  Country: None (occurrence: None)
  Receive Date: 20110628
  Receipt Date: 20110616
  Transmission Date: 20111010
  Serious: Yes (Hospitalization)
  Sender: FDA-Public Use
  Company Number: SE-ROCHE-781553

PATIENT
  Sex: Male
  Weight: 79.5 kg

DRUGS (11)
  1. EPIRUBICIN [Suspect]
     Dosage: EVERY THREE WEEKS. DATE OF LAST TREATMENT: 26 JANUARY 2011
     Route: 042
     Dates: start: 20110105
  2. CISPLATIN [Suspect]
     Route: 065
     Dates: start: 20110509, end: 20110601
  3. PRIMPERAN TAB [Concomitant]
     Dates: start: 20110329
  4. AMLODIPINE [Concomitant]
  5. SIMVASTATIN [Concomitant]
  6. OMEPRAZOLE [Concomitant]
  7. ENALAPRIL MALEATE [Concomitant]
  8. METOPROLOL TARTRATE [Concomitant]
     Dosage: FREQUENCY 1X1
     Route: 048
     Dates: start: 20110329, end: 20110604
  9. CAPECITABINE [Suspect]
     Dosage: LAST TREATMENT: 03 JUNE 2011.BID FOR 2 WKS BID 5 X PWK, EVERY 3 WKS TRIAL TREATMENT HAS BEEN DELAYED
     Route: 048
     Dates: start: 20110105
  10. OXALIPLATIN [Suspect]
     Dosage: DATE OF LAST TREATMENT: 26 JANUARY 2011, EVERY 3 WEEK/EVERY 1 WEEK,5 WEEKS.
     Route: 042
     Dates: start: 20110105
  11. LOPERAMIDE [Concomitant]
     Dosage: FREQUENCY: PRN
     Route: 048
     Dates: start: 20110209

REACTIONS (3)
  - DYSPHAGIA [None]
  - MUCOSAL INFLAMMATION [None]
  - HYPOCALCAEMIA [None]
